FAERS Safety Report 10237144 (Version 1)
Quarter: 2014Q2

REPORT INFORMATION
  Report Type: Spontaneous
  Country: US (occurrence: US)
  Receive Date: 20140613
  Receipt Date: 20140613
  Transmission Date: 20141212
  Serious: Yes (Hospitalization)
  Sender: FDA-Public Use
  Company Number: US-GLAXOSMITHKLINE-A1076438A

PATIENT
  Age: 50 Year
  Sex: Female

DRUGS (6)
  1. ADVAIR HFA [Suspect]
     Indication: SLEEP APNOEA SYNDROME
     Dosage: 2PUFF TWICE PER DAY
     Route: 065
     Dates: start: 2009
  2. VENTOLIN [Suspect]
     Indication: PRODUCT USED FOR UNKNOWN INDICATION
     Route: 065
     Dates: start: 2009
  3. HCTZ [Suspect]
     Indication: PRODUCT USED FOR UNKNOWN INDICATION
     Route: 065
  4. ATENOLOL [Concomitant]
  5. POTASSIUM [Concomitant]
  6. NORVASC [Concomitant]

REACTIONS (8)
  - Cardiac failure congestive [Not Recovered/Not Resolved]
  - Dyspnoea [Not Recovered/Not Resolved]
  - Stent placement [Not Recovered/Not Resolved]
  - Ejection fraction decreased [Not Recovered/Not Resolved]
  - Overdose [Not Recovered/Not Resolved]
  - Blood potassium decreased [Recovered/Resolved]
  - Drug administration error [Not Recovered/Not Resolved]
  - Expired product administered [Not Recovered/Not Resolved]
